FAERS Safety Report 7636534-6 (Version None)
Quarter: 2011Q3

REPORT INFORMATION
  Report Type: 
  Country: None (occurrence: None)
  Receive Date: 20110726
  Receipt Date: 20110721
  Transmission Date: 20111222
  Serious: Yes (Other)
  Sender: FDA-Public Use
  Company Number: US-JNJFOC-2006090436

PATIENT
  Age: 28 Year
  Sex: Male

DRUGS (1)
  1. DEXTROMETHORPHAN HYDROBROMIDE [Suspect]
     Indication: PRODUCT USED FOR UNKNOWN INDICATION
     Dosage: DAILY DOSE TEXT: UNKNOWN
     Route: 048
     Dates: start: 20060101

REACTIONS (15)
  - DIZZINESS POSTURAL [None]
  - HEADACHE [None]
  - DRUG ABUSE [None]
  - OVERDOSE [None]
  - DRUG SCREEN POSITIVE [None]
  - DISORIENTATION [None]
  - NYSTAGMUS [None]
  - FEELING DRUNK [None]
  - FLUSHING [None]
  - FATIGUE [None]
  - SOMNOLENCE [None]
  - PSYCHOMOTOR RETARDATION [None]
  - STUPOR [None]
  - ATAXIA [None]
  - ABNORMAL BEHAVIOUR [None]
